FAERS Safety Report 11925271 (Version 1)
Quarter: 2016Q1

REPORT INFORMATION
  Report Type: Spontaneous
  Country: AT (occurrence: AT)
  Receive Date: 20160118
  Receipt Date: 20160118
  Transmission Date: 20160526
  Serious: Yes (Death, Hospitalization)
  Sender: FDA-Public Use
  Company Number: AT-TEVA-625287ISR

PATIENT
  Age: 37 Year
  Sex: Male
  Weight: 85 kg

DRUGS (15)
  1. ZOLDEM 10 MG FILMTABLETTEN [Suspect]
     Active Substance: ZOLPIDEM TARTRATE
     Dosage: 2 DOSAGE FORMS DAILY; 0-0-2
     Dates: end: 20150806
  2. LEVETIRACETAM ACTAVIS 1000MG [Suspect]
     Active Substance: LEVETIRACETAM
     Dosage: 2000 MILLIGRAM DAILY;
     Dates: end: 20150806
  3. MIRTABENE 30 MG [Suspect]
     Active Substance: MIRTAZAPINE
     Dosage: 1 DOSAGE FORMS DAILY; 0-0-1
     Dates: end: 20150806
  4. DUROTIV 40MG MAGENSAFTRESISTENTE TABLETTEN [Concomitant]
     Dosage: 1 DOSAGE FORMS DAILY;
     Dates: end: 20150806
  5. SIMVASTATIN RATIOPHARM [Concomitant]
     Active Substance: SIMVASTATIN
     Dosage: 20 MILLIGRAM DAILY;
     Dates: end: 20150806
  6. SEROQUEL XR [Suspect]
     Active Substance: QUETIAPINE FUMARATE
     Dosage: 2 DOSAGE FORMS DAILY;
     Dates: end: 20150806
  7. BLOPRESS PLUS 16MG/12.5 MG [Concomitant]
     Dosage: 1 DOSAGE FORMS DAILY;
     Dates: end: 20150806
  8. SERETIDE [Concomitant]
     Active Substance: FLUTICASONE FUROATE\SALMETEROL XINAFOATE
     Dosage: 4 DOSAGE FORMS DAILY; 2X2 PUFFS
     Dates: end: 20150806
  9. TAMSU GENERICON RETARD 0.4 MG KAPSELN [Concomitant]
     Dosage: 1 DOSAGE FORMS DAILY;
     Dates: end: 20150806
  10. SINGULAIR [Concomitant]
     Active Substance: MONTELUKAST SODIUM
     Dosage: 10 MILLIGRAM DAILY; 1-0-0
     Dates: end: 20150806
  11. CONCOR 5 MG FILMTABLETTEN [Concomitant]
     Dosage: 1 DOSAGE FORMS DAILY;
     Dates: end: 20150806
  12. PREDAXA 150MG HARTKAPSELN [Concomitant]
     Dosage: 2 DOSAGE FORMS DAILY;
  13. VALPROIC ACID. [Suspect]
     Active Substance: VALPROIC ACID
     Dates: end: 20150806
  14. BERODUAL [Concomitant]
     Active Substance: FENOTEROL HYDROBROMIDE\IPRATROPIUM BROMIDE
     Dates: end: 20150806
  15. VESICARE 5MG FILMTABLETTEN [Concomitant]
     Dosage: 1 DOSAGE FORMS DAILY;
     Dates: end: 20150806

REACTIONS (22)
  - Diplopia [Unknown]
  - Listless [Unknown]
  - Emphysema [None]
  - Ataxia [Unknown]
  - Indifference [Unknown]
  - Gastroduodenitis [None]
  - Insomnia [Unknown]
  - Dizziness [Unknown]
  - Benign prostatic hyperplasia [None]
  - Retching [Unknown]
  - Syncope [Unknown]
  - Pyelocystitis [None]
  - Pancreatic steatosis [None]
  - Circulatory collapse [None]
  - Vertigo [None]
  - Nausea [Unknown]
  - Fatigue [Unknown]
  - Aggression [Unknown]
  - Pulmonary oedema [None]
  - Toxicity to various agents [Fatal]
  - Conduct disorder [Unknown]
  - Aspiration [Unknown]

NARRATIVE: CASE EVENT DATE: 201505
